FAERS Safety Report 5057864-0 (Version None)
Quarter: 2006Q3

REPORT INFORMATION
  Report Type: 
  Country: None (occurrence: None)
  Receive Date: 20060721
  Receipt Date: 20060324
  Transmission Date: 20061208
  Serious: Yes (Hospitalization)
  Sender: FDA-Public Use
  Company Number: CH-ROCHE-441833

PATIENT
  Age: 65 Year
  Sex: Female

DRUGS (18)
  1. TORSEMIDE [Suspect]
     Indication: HYPERTENSIVE HEART DISEASE
     Dosage: INDICATION REPORTED AS ^HYPERTENSIVE HEART DISEASE WITH (CONGESTIVE) HEART FAILURE^
     Route: 048
     Dates: start: 20050315
  2. QUININE SULFATE [Suspect]
     Route: 048
     Dates: start: 20051215, end: 20051228
  3. LASIX [Suspect]
     Dosage: STRENGTH: REPORTED AS ^MG/ML^ DOSING: REPORTED AS ^DOSE REDUCED^
     Route: 040
     Dates: start: 20051208
  4. LASIX [Suspect]
     Dosage: DOSING: REPORTED AS ^DOSE REDUCED^
     Route: 040
  5. ASPIRIN [Suspect]
     Route: 048
     Dates: start: 20040615
  6. NEXIUM [Suspect]
     Indication: DYSPEPSIA
     Route: 048
     Dates: start: 20051202, end: 20060112
  7. FERRUM HAUSMANN [Suspect]
     Route: 048
     Dates: start: 20050315, end: 20051228
  8. ALDACTONE [Concomitant]
     Dosage: FORM: REPORTED AS ^ COATED TABLETS, FILM^
  9. FRAXIPARINE [Concomitant]
     Dosage: FORM: REPORTED AS ^VIALS^
     Route: 065
  10. PLAVIX [Concomitant]
     Dosage: FORM: REPORTED AS ^ COATED TABLETS, FILM^
  11. LESCOL [Concomitant]
  12. COZAAR [Concomitant]
     Dosage: FORM: REPORTED AS ^COATED TABLETS, FILM^
  13. DAFALGAN [Concomitant]
  14. NEURONTIN [Concomitant]
  15. SIFROL [Concomitant]
  16. STILNOX [Concomitant]
  17. XANAX [Concomitant]
  18. MOCLOBEMIDE [Concomitant]
     Dosage: DRUG NAME: REPORTED AS ^MOCLO A^ FORM: REPORTED AS ^COATED TABLETS, FILM^

REACTIONS (2)
  - HAEMOLYTIC ANAEMIA [None]
  - SYNCOPE [None]
